FAERS Safety Report 10248206 (Version 1)
Quarter: 2014Q2

REPORT INFORMATION
  Report Type: Spontaneous
  Country: ES (occurrence: ES)
  Receive Date: 20140620
  Receipt Date: 20140620
  Transmission Date: 20141212
  Serious: Yes (Hospitalization, Other)
  Sender: FDA-Public Use
  Company Number: ES-UCBSA-2014002526

PATIENT
  Age: 62 Year
  Sex: Female

DRUGS (1)
  1. CIMZIA [Suspect]
     Indication: RHEUMATOID ARTHRITIS
     Dosage: UNK
     Dates: start: 201012, end: 201101

REACTIONS (5)
  - Spontaneous haematoma [Unknown]
  - Haemarthrosis [Unknown]
  - Atlantoaxial instability [Unknown]
  - Sepsis [Unknown]
  - Salmonella sepsis [None]
